FAERS Safety Report 8546544-2 (Version None)
Quarter: 2012Q3

REPORT INFORMATION
  Report Type: 
  Country: None (occurrence: None)
  Receive Date: 20120727
  Receipt Date: 20111222
  Transmission Date: 20120928
  Serious: No
  Sender: FDA-Public Use
  Company Number: US-ASTRAZENECA-2011SE77884

PATIENT
  Age: 46 Year
  Sex: Female
  Weight: 37.2 kg

DRUGS (2)
  1. EFFEXOR [Concomitant]
  2. SEROQUEL [Suspect]
     Indication: BIPOLAR DISORDER
     Route: 048

REACTIONS (3)
  - MALAISE [None]
  - EYE INFECTION [None]
  - DEPRESSION [None]
